FAERS Safety Report 4818387-4 (Version None)
Quarter: 2005Q4

REPORT INFORMATION
  Report Type: 
  Country: None (occurrence: None)
  Receive Date: 20051031
  Receipt Date: 20051019
  Transmission Date: 20060501
  Serious: Yes (Hospitalization)
  Sender: FDA-Public Use
  Company Number: 234989K05USA

PATIENT
  Age: 50 Year
  Sex: Female

DRUGS (6)
  1. REBIF [Suspect]
     Indication: MULTIPLE SCLEROSIS
     Dosage: 44 MCG, 3 IN 1 WEEKS, SUBCUTANEOUS
     Route: 058
     Dates: start: 20030718
  2. ACETYLSALICYLIC ACID SRT [Concomitant]
  3. SLEEPING PILL (ALL OTHER THERAPEUTIC PRODUCTS) [Concomitant]
  4. SYNTHROID [Concomitant]
  5. PERCOCET (TYLOX /00446701/) [Concomitant]
  6. FLONASE [Concomitant]

REACTIONS (5)
  - ASTHENIA [None]
  - BRONCHITIS [None]
  - CRYING [None]
  - CYSTITIS [None]
  - NEPHROLITHIASIS [None]
